FAERS Safety Report 8230669-5 (Version None)
Quarter: 2012Q1

REPORT INFORMATION
  Report Type: 
  Country: None (occurrence: None)
  Receive Date: 20120323
  Receipt Date: 20120321
  Transmission Date: 20120608
  Serious: Yes (Other)
  Sender: FDA-Public Use
  Company Number: US-JNJFOC-20120309995

PATIENT
  Sex: Female

DRUGS (1)
  1. NICORETTE [Suspect]
     Indication: PRODUCT USED FOR UNKNOWN INDICATION
     Dosage: 12-14 PIECES A DAY FOR 8 TO 10 YEARS
     Route: 048

REACTIONS (2)
  - NICOTINE DEPENDENCE [None]
  - INTENTIONAL DRUG MISUSE [None]
